FAERS Safety Report 22380473 (Version 1)
Quarter: 2023Q2

REPORT INFORMATION
  Report Type: Spontaneous
  Country: FR (occurrence: FR)
  Receive Date: 20230529
  Receipt Date: 20230529
  Transmission Date: 20230722
  Serious: Yes (Other)
  Sender: FDA-Public Use
  Company Number: FR-009507513-2305FRA004669

PATIENT
  Age: 70 Year
  Weight: 79 kg

DRUGS (7)
  1. DABRAFENIB [Interacting]
     Active Substance: DABRAFENIB
     Indication: Craniopharyngioma
     Dosage: UNK
     Route: 065
  2. TRAMETINIB [Interacting]
     Active Substance: TRAMETINIB
     Indication: Craniopharyngioma
     Dosage: UNK
     Route: 065
  3. RALTEGRAVIR POTASSIUM [Interacting]
     Active Substance: RALTEGRAVIR POTASSIUM
     Indication: HIV infection
     Dosage: UNK
     Route: 048
  4. DORAVIRINE [Interacting]
     Active Substance: DORAVIRINE
     Indication: HIV infection
     Dosage: 100 MILLIGRAM, BID
     Route: 048
  5. DOLUTEGRAVIR [Interacting]
     Active Substance: DOLUTEGRAVIR
     Indication: HIV infection
     Dosage: 50 MILLIGRAM, BID
     Route: 065
  6. DOLUTEGRAVIR [Interacting]
     Active Substance: DOLUTEGRAVIR
     Dosage: 50 MILLIGRAM, QD
     Route: 065
  7. ETRAVIRINE [Concomitant]
     Active Substance: ETRAVIRINE
     Indication: HIV infection
     Dosage: UNK
     Route: 065

REACTIONS (1)
  - Drug interaction [Unknown]
